FAERS Safety Report 22850901 (Version 4)
Quarter: 2024Q4

REPORT INFORMATION
  Report Type: Spontaneous
  Country: US (occurrence: US)
  Receive Date: 20230822
  Receipt Date: 20241211
  Transmission Date: 20250114
  Serious: Yes (Other)
  Sender: PFIZER
  Company Number: US-PFIZER INC-PV202300143041

PATIENT
  Age: 65 Year
  Sex: Female
  Weight: 61.235 kg

DRUGS (12)
  1. BRAFTOVI [Suspect]
     Active Substance: ENCORAFENIB
     Indication: Thyroid cancer metastatic
     Dosage: 75 MG CAPSULE 6 CAPSULE ORALLY DAILY
     Route: 048
     Dates: start: 20191227
  2. BRAFTOVI [Suspect]
     Active Substance: ENCORAFENIB
     Dosage: 300 MG ON DAY 1 (4 TABS)
  3. BRAFTOVI [Suspect]
     Active Substance: ENCORAFENIB
     Dosage: 3 TABS ON DAY 2
  4. BRAFTOVI [Suspect]
     Active Substance: ENCORAFENIB
     Dosage: 300 MG, DAILY (GO BACK ON DAY 3)
     Route: 048
  5. BRAFTOVI [Suspect]
     Active Substance: ENCORAFENIB
     Dosage: 375 MG, DAILY IN MORNING
  6. BRAFTOVI [Suspect]
     Active Substance: ENCORAFENIB
     Dosage: 5 CAPSULES DAILY
  7. BRAFTOVI [Suspect]
     Active Substance: ENCORAFENIB
     Dosage: 75 MG CAPSULE 5 CAPSULE ORALLY DAILY.
     Route: 048
  8. MEKTOVI [Suspect]
     Active Substance: BINIMETINIB
     Indication: Thyroid cancer metastatic
     Dosage: 90 MG  (15 MG (6 DAILY))
     Route: 048
     Dates: start: 20191227
  9. MEKTOVI [Suspect]
     Active Substance: BINIMETINIB
     Dosage: 45 MG, 2X/DAY (15 MG TABLET 3 TABLET ORALLY EVERY 12 HOURS/45 MG BID (TWO TIMES IN A DAY) ON DAY 1)
     Route: 048
  10. MEKTOVI [Suspect]
     Active Substance: BINIMETINIB
     Dosage: 30 MG, 2X/DAY
  11. MEKTOVI [Suspect]
     Active Substance: BINIMETINIB
     Dosage: 3 TABLET ORALLY EVERY 12 HOURS
     Route: 048
  12. MEKTOVI [Suspect]
     Active Substance: BINIMETINIB
     Dosage: 45 MG, 2X/DAY
     Route: 048

REACTIONS (3)
  - Second primary malignancy [Unknown]
  - Squamous cell carcinoma of skin [Unknown]
  - Off label use [Unknown]
